FAERS Safety Report 24463746 (Version 1)
Quarter: 2024Q4

REPORT INFORMATION
  Report Type: Report from Study
  Country: US (occurrence: US)
  Receive Date: 20241018
  Receipt Date: 20241018
  Transmission Date: 20250114
  Serious: No
  Sender: ROCHE
  Company Number: US-ROCHE-3485278

PATIENT
  Age: 47 Year
  Sex: Female

DRUGS (6)
  1. XOLAIR [Suspect]
     Active Substance: OMALIZUMAB
     Indication: Urticaria
     Dosage: LAST INJECTION DATE: 28/FEB/2023
     Route: 058
  2. XOLAIR [Suspect]
     Active Substance: OMALIZUMAB
     Route: 058
  3. ZYTEC [Concomitant]
  4. MONTELUKAST [Concomitant]
     Active Substance: MONTELUKAST
  5. PEPCID [Concomitant]
     Active Substance: FAMOTIDINE
  6. NP THYROID [Concomitant]
     Active Substance: LEVOTHYROXINE\LIOTHYRONINE

REACTIONS (2)
  - Off label use [Unknown]
  - No adverse event [Unknown]
